FAERS Safety Report 8392307-0 (Version None)
Quarter: 2012Q2

REPORT INFORMATION
  Report Type: 
  Country: None (occurrence: None)
  Receive Date: 20120529
  Receipt Date: 20120524
  Transmission Date: 20120825
  Serious: Yes (Death)
  Sender: FDA-Public Use
  Company Number: FR-ASTRAZENECA-2012SE33580

PATIENT
  Age: 56 Year
  Sex: Male

DRUGS (7)
  1. OLANZAPINE [Concomitant]
     Route: 048
     Dates: end: 20120415
  2. VALSARTAN  AND HYDROCHLOROTHIAZIDE [Concomitant]
     Route: 048
  3. FENOFIBRATE [Concomitant]
     Route: 048
  4. GLUCOPHAGE [Concomitant]
     Route: 048
  5. GLYBURIDE [Concomitant]
     Route: 048
  6. OLANZAPINE [Concomitant]
     Route: 048
     Dates: start: 20120417
  7. QUETIAPINE FUMARATE [Suspect]
     Indication: SCHIZOPHRENIA
     Route: 048
     Dates: start: 20120416

REACTIONS (1)
  - CARDIAC ARREST [None]
